FAERS Safety Report 15653647 (Version 1)
Quarter: 2018Q4

REPORT INFORMATION
  Report Type: Spontaneous
  Country: US (occurrence: US)
  Receive Date: 20181122
  Receipt Date: 20181122
  Transmission Date: 20190205
  Serious: Yes (Other)
  Sender: FDA-Public Use
  Company Number: None

PATIENT
  Age: 56 Year
  Sex: Female
  Weight: 91 kg

DRUGS (2)
  1. DUONEB [Concomitant]
     Active Substance: ALBUTEROL SULFATE\IPRATROPIUM BROMIDE
     Dates: start: 20180220, end: 20180222
  2. DUONEB [Suspect]
     Active Substance: ALBUTEROL SULFATE\IPRATROPIUM BROMIDE
     Indication: ASTHMA
     Dosage: ?          OTHER FREQUENCY:Q4H;?
     Route: 055
     Dates: start: 20180220, end: 20180222

REACTIONS (1)
  - Tachycardia [None]

NARRATIVE: CASE EVENT DATE: 20180220
